FAERS Safety Report 21997554 (Version 1)
Quarter: 2023Q1

REPORT INFORMATION
  Report Type: Report from Study
  Country: IL (occurrence: IL)
  Receive Date: 20230216
  Receipt Date: 20230216
  Transmission Date: 20230418
  Serious: Yes (Death)
  Sender: FDA-Public Use
  Company Number: IL-ABBVIE-22K-082-4279020-00

PATIENT
  Age: 77 Year
  Sex: Female
  Weight: 63 kg

DRUGS (21)
  1. VENCLEXTA [Suspect]
     Active Substance: VENETOCLAX
     Indication: Acute myeloid leukaemia
     Dosage: 0 MILLIGRAM
     Route: 048
     Dates: start: 20220815, end: 20220820
  2. VENCLEXTA [Suspect]
     Active Substance: VENETOCLAX
     Indication: Acute myeloid leukaemia
     Dosage: 400 MILLIGRAM
     Route: 048
     Dates: start: 20220821, end: 20220905
  3. VENCLEXTA [Suspect]
     Active Substance: VENETOCLAX
     Indication: Acute myeloid leukaemia
     Dosage: 400 MILLIGRAM
     Route: 048
     Dates: start: 20220308, end: 20220814
  4. VENCLEXTA [Suspect]
     Active Substance: VENETOCLAX
     Indication: Acute myeloid leukaemia
     Dosage: 0 MILLIGRAM/CESSATION DATE:DEC 2022
     Route: 048
     Dates: start: 20221209
  5. VENCLEXTA [Suspect]
     Active Substance: VENETOCLAX
     Indication: Acute myeloid leukaemia
     Dosage: 200 MILLIGRAM
     Route: 048
     Dates: start: 20220307, end: 20220307
  6. VENCLEXTA [Suspect]
     Active Substance: VENETOCLAX
     Indication: Acute myeloid leukaemia
     Dosage: 400 MILLIGRAM
     Route: 048
     Dates: start: 20221106, end: 20221208
  7. VENCLEXTA [Suspect]
     Active Substance: VENETOCLAX
     Indication: Acute myeloid leukaemia
     Dosage: 0 MILLIGRAM?DOSE REDUCTION
     Route: 048
     Dates: start: 20221104, end: 20221105
  8. VENCLEXTA [Suspect]
     Active Substance: VENETOCLAX
     Indication: Acute myeloid leukaemia
     Dosage: 100 MILLIGRAM
     Route: 048
     Dates: start: 20220306, end: 20220306
  9. VENCLEXTA [Suspect]
     Active Substance: VENETOCLAX
     Indication: Acute myeloid leukaemia
     Dosage: 400 MILLIGRAM
     Route: 048
     Dates: start: 20221102, end: 20221103
  10. VENCLEXTA [Suspect]
     Active Substance: VENETOCLAX
     Indication: Acute myeloid leukaemia
     Dosage: 0 MILLIGRAM
     Route: 048
     Dates: start: 20220906, end: 20221101
  11. AZACITIDINE [Suspect]
     Active Substance: AZACITIDINE
     Indication: Acute myeloid leukaemia
     Dosage: 125 MILLIGRAM?DURATION TEXT: CYCLE 10
     Route: 058
     Dates: start: 20221130, end: 20221208
  12. AZACITIDINE [Suspect]
     Active Substance: AZACITIDINE
     Indication: Acute myeloid leukaemia
     Dosage: 130 MILLIGRAM?DURATION TEXT: CYCLE 5
     Route: 058
     Dates: start: 20220608, end: 20220619
  13. AZACITIDINE [Suspect]
     Active Substance: AZACITIDINE
     Indication: Acute myeloid leukaemia
     Dosage: 130 MILLIGRAM?CYCLE 3
     Route: 058
     Dates: start: 20220403, end: 20220411
  14. AZACITIDINE [Suspect]
     Active Substance: AZACITIDINE
     Indication: Acute myeloid leukaemia
     Dosage: 125 MILLIGRAM?DURATION TEXT: CYCLE 7
     Route: 058
     Dates: start: 20220815, end: 20220823
  15. AZACITIDINE [Suspect]
     Active Substance: AZACITIDINE
     Indication: Acute myeloid leukaemia
     Dosage: 130 MILLIGRAM?DURATION TEXT: CYCLE 4
     Route: 058
     Dates: start: 20220508, end: 20220516
  16. AZACITIDINE [Suspect]
     Active Substance: AZACITIDINE
     Indication: Acute myeloid leukaemia
     Dosage: 130 MILLIGRAM?DURATION TEXT: CYCLE 6
     Route: 058
     Dates: start: 20220717, end: 20220725
  17. AZACITIDINE [Suspect]
     Active Substance: AZACITIDINE
     Indication: Acute myeloid leukaemia
     Dosage: 125 MILLIGRAM?DURATION TEXT: CYCLE 8
     Route: 058
     Dates: start: 20220928, end: 20221012
  18. AZACITIDINE [Suspect]
     Active Substance: AZACITIDINE
     Indication: Acute myeloid leukaemia
     Dosage: 125 MILLIGRAM?DURATION TEXT: CYCLE 1
     Route: 058
     Dates: start: 20220131, end: 20220208
  19. AZACITIDINE [Suspect]
     Active Substance: AZACITIDINE
     Indication: Acute myeloid leukaemia
     Dosage: 130 MILLIGRAM?DURATION TEXT: CYCLE 2 - INTERRUPTION DUE TO AE
     Route: 058
     Dates: start: 20220302, end: 20220310
  20. AZACITIDINE [Suspect]
     Active Substance: AZACITIDINE
     Indication: Acute myeloid leukaemia
     Dosage: 125 MILLIGRAM?DURATION TEXT: CYCLE 9
     Route: 058
     Dates: start: 20221102, end: 20221110
  21. COVID-19 Vaccination [Concomitant]
     Indication: Prophylaxis
     Dosage: ONE IN ONCE
     Route: 030

REACTIONS (5)
  - Cardiac arrest [Fatal]
  - Decreased appetite [Not Recovered/Not Resolved]
  - Neutropenia [Not Recovered/Not Resolved]
  - Fatigue [Not Recovered/Not Resolved]
  - Diarrhoea [Recovered/Resolved]

NARRATIVE: CASE EVENT DATE: 20220306
